FAERS Safety Report 10672265 (Version 3)
Quarter: 2015Q1

REPORT INFORMATION
  Report Type: Report from Study
  Country: KR (occurrence: KR)
  Receive Date: 20141223
  Receipt Date: 20150109
  Transmission Date: 20150720
  Serious: Yes (Hospitalization)
  Sender: FDA-Public Use
  Company Number: KR-SA-2014SA169444

PATIENT
  Age: 59 Year
  Sex: Male
  Weight: 101 kg

DRUGS (4)
  1. LANTUS [Suspect]
     Active Substance: INSULIN GLARGINE
     Indication: HYPOGLYCAEMIA
     Dosage: DOSE:50 UNIT(S)
     Route: 058
     Dates: start: 20141015
  2. TENORMIN [Concomitant]
     Active Substance: ATENOLOL
     Indication: MYOCARDIAL INFARCTION
     Route: 048
     Dates: start: 20141015
  3. TEVETEN [Concomitant]
     Active Substance: EPROSARTAN MESYLATE
     Indication: HYPERTENSION
     Route: 048
     Dates: start: 20141015
  4. APIDRA [Suspect]
     Active Substance: INSULIN GLULISINE
     Indication: HYPOGLYCAEMIA
     Dosage: DOSE:20 UNIT(S)
     Route: 058
     Dates: start: 20141015

REACTIONS (4)
  - Chest discomfort [Recovered/Resolved]
  - Blood glucose increased [Not Recovered/Not Resolved]
  - Peripheral swelling [Not Recovered/Not Resolved]
  - Dyspnoea [Unknown]

NARRATIVE: CASE EVENT DATE: 2014
